FAERS Safety Report 16259441 (Version 1)
Quarter: 2019Q2

REPORT INFORMATION
  Report Type: Spontaneous
  Country: GB (occurrence: GB)
  Receive Date: 20190501
  Receipt Date: 20190501
  Transmission Date: 20190711
  Serious: Yes (Hospitalization, Other)
  Sender: FDA-Public Use
  Company Number: GB-TEVA-2019-GB-1044038

PATIENT
  Age: 16 Year
  Sex: Male
  Weight: 66 kg

DRUGS (1)
  1. SODIUM VALPROATE [Suspect]
     Active Substance: VALPROATE SODIUM
     Indication: IDIOPATHIC GENERALISED EPILEPSY
     Route: 048

REACTIONS (3)
  - Chromaturia [Unknown]
  - Jaundice [Unknown]
  - Hepatitis [Not Recovered/Not Resolved]
